FAERS Safety Report 18670560 (Version 1)
Quarter: 2020Q4

REPORT INFORMATION
  Report Type: Spontaneous
  Country: IT (occurrence: IT)
  Receive Date: 20201228
  Receipt Date: 20201228
  Transmission Date: 20210114
  Serious: Yes (Hospitalization)
  Sender: FDA-Public Use
  Company Number: NVSC2020IT335049

PATIENT
  Age: 20 Year
  Sex: Female

DRUGS (3)
  1. OLANZAPINE. [Suspect]
     Active Substance: OLANZAPINE
     Indication: SUICIDE ATTEMPT
     Dosage: 50 MG TOTAL
     Route: 048
     Dates: start: 20201207, end: 20201207
  2. SERTRALINE [Suspect]
     Active Substance: SERTRALINE HYDROCHLORIDE
     Indication: SUICIDE ATTEMPT
     Dosage: 1500 MG TOTAL
     Route: 048
     Dates: start: 20201207, end: 20201207
  3. FLURAZEPAM [Suspect]
     Active Substance: FLURAZEPAM HYDROCHLORIDE
     Indication: SUICIDE ATTEMPT
     Dosage: 180 MG TOTAL
     Route: 048
     Dates: start: 20201207, end: 20201207

REACTIONS (3)
  - Suicide attempt [Recovering/Resolving]
  - Intentional overdose [Recovering/Resolving]
  - Hypotension [Recovering/Resolving]

NARRATIVE: CASE EVENT DATE: 20201207
